FAERS Safety Report 18496233 (Version 3)
Quarter: 2021Q1

REPORT INFORMATION
  Report Type: Report from Study
  Country: None (occurrence: GB)
  Receive Date: 20201112
  Receipt Date: 20210309
  Transmission Date: 20210419
  Serious: Yes (Death, Other)
  Sender: FDA-Public Use
  Company Number: GB-ABBVIE-20K-167-3646907-00

PATIENT
  Age: 78 Year
  Sex: Female
  Weight: 70.5 kg

DRUGS (3)
  1. VENETOCLAX. [Suspect]
     Active Substance: VENETOCLAX
     Indication: CHRONIC LYMPHOCYTIC LEUKAEMIA
     Route: 048
     Dates: start: 201912, end: 202009
  2. ACICLOVIR [Concomitant]
     Active Substance: ACYCLOVIR
     Indication: PRODUCT USED FOR UNKNOWN INDICATION
     Route: 048
  3. COTRIMOXAZOLE [Concomitant]
     Active Substance: SULFAMETHOXAZOLE\TRIMETHOPRIM
     Indication: PROPHYLAXIS
     Route: 048
     Dates: start: 201912, end: 202010

REACTIONS (15)
  - Hepatic lesion [Unknown]
  - Thrombocytopenia [Unknown]
  - Hypertension [Unknown]
  - Calcinosis [Unknown]
  - Splenomegaly [Unknown]
  - Fatigue [Unknown]
  - Lipoma [Unknown]
  - Lymphocytosis [Unknown]
  - Lymphadenopathy [Unknown]
  - Hypercholesterolaemia [Unknown]
  - Cholelithiasis [Unknown]
  - Richter^s syndrome [Fatal]
  - Transfusion-associated dyspnoea [Unknown]
  - Cyst [Unknown]
  - Dyspnoea [Unknown]

NARRATIVE: CASE EVENT DATE: 202009
